FAERS Safety Report 5014123-X (Version None)
Quarter: 2006Q2

REPORT INFORMATION
  Report Type: 
  Country: None (occurrence: None)
  Receive Date: 20060414
  Receipt Date: 20060105
  Transmission Date: 20061013
  Serious: No
  Sender: FDA-Public Use
  Company Number: 2006SP000094

PATIENT
  Age: 72 Year
  Sex: Male
  Weight: 67.586 kg

DRUGS (12)
  1. LUNESTA [Suspect]
     Indication: INSOMNIA
     Dosage: SEE IMAGE
     Route: 048
     Dates: start: 20051201, end: 20060101
  2. LUNESTA [Suspect]
     Indication: INSOMNIA
     Dosage: SEE IMAGE
     Route: 048
     Dates: start: 20060101, end: 20060101
  3. MYCOPHENOLATE MOFETIL [Concomitant]
  4. PROGRAF [Concomitant]
  5. BACTRIM [Concomitant]
  6. METOPROLOL TARTRATE [Concomitant]
  7. FOLIC ACID [Concomitant]
  8. INSULIN [Concomitant]
  9. LANTUS [Concomitant]
  10. PANTOPRAZOLE [Concomitant]
  11. MEGASE [Concomitant]
  12. PREDNISONE [Concomitant]

REACTIONS (2)
  - DRUG INEFFECTIVE [None]
  - INITIAL INSOMNIA [None]
